FAERS Safety Report 15300068 (Version 1)
Quarter: 2018Q3

REPORT INFORMATION
  Report Type: Spontaneous
  Country: US (occurrence: US)
  Receive Date: 20180821
  Receipt Date: 20180821
  Transmission Date: 20181010
  Serious: No
  Sender: FDA-Public Use
  Company Number: US-PFIZER INC-2018084099

PATIENT
  Age: 13 Year
  Sex: Female

DRUGS (6)
  1. GENOTROPIN [Suspect]
     Active Substance: SOMATROPIN
     Dosage: 3 MG, DAILY
     Dates: start: 20170916
  2. LEVOTHYROXINE. [Concomitant]
     Active Substance: LEVOTHYROXINE
     Indication: HYPOTHYROIDISM
     Dosage: 62.5 MG, DAILY
     Dates: start: 20120801
  3. GENOTROPIN [Suspect]
     Active Substance: SOMATROPIN
     Indication: TURNER^S SYNDROME
     Dosage: 2.8 MG, DAILY
     Route: 058
     Dates: start: 20071010
  4. GENOTROPIN [Suspect]
     Active Substance: SOMATROPIN
     Dosage: 2.8 MG, ONCE DAILY (2.8 ONCE A DAY)
     Dates: start: 201709
  5. ELESTRIN [Concomitant]
     Active Substance: ESTRADIOL
     Indication: TURNER^S SYNDROME
     Dosage: UNK, DAILY, (1 METERED DAILY DOSE)
     Dates: start: 20151001
  6. MEDROXYPROGESTERONE [Concomitant]
     Active Substance: MEDROXYPROGESTERONE
     Indication: TURNER^S SYNDROME
     Dosage: 5 MG, 2X/DAY (BID)
     Dates: start: 20170714

REACTIONS (3)
  - Device issue [Unknown]
  - Burning sensation [Unknown]
  - Drug dose omission [Unknown]

NARRATIVE: CASE EVENT DATE: 20180223
